FAERS Safety Report 6900547-X (Version None)
Quarter: 2010Q3

REPORT INFORMATION
  Report Type: 
  Country: None (occurrence: None)
  Receive Date: 20100803
  Receipt Date: 20100723
  Transmission Date: 20110219
  Serious: Yes (Hospitalization)
  Sender: FDA-Public Use
  Company Number: US-JNJFOC-20100707896

PATIENT
  Sex: Female
  Weight: 68.04 kg

DRUGS (7)
  1. REMICADE [Suspect]
     Indication: CROHN'S DISEASE
     Dosage: 7TH INFUSION
     Route: 042
  2. REMICADE [Suspect]
     Route: 042
  3. ACETAMINOPHEN [Concomitant]
     Indication: PREMEDICATION
  4. ANTIHISTAMINES [Concomitant]
     Indication: PREMEDICATION
  5. CORTICOSTEROIDS [Concomitant]
     Indication: PREMEDICATION
  6. METHOTREXATE [Concomitant]
     Indication: CROHN'S DISEASE
  7. BUDESONIDE [Concomitant]
     Indication: CROHN'S DISEASE

REACTIONS (2)
  - CROHN'S DISEASE [None]
  - SMALL INTESTINAL STENOSIS [None]
